FAERS Safety Report 5678704-2 (Version None)
Quarter: 2008Q1

REPORT INFORMATION
  Report Type: 
  Country: None (occurrence: None)
  Receive Date: 20080320
  Receipt Date: 20080312
  Transmission Date: 20080703
  Serious: Yes (Hospitalization)
  Sender: FDA-Public Use
  Company Number: 2008AL001531

PATIENT
  Age: 5 Year
  Sex: Male

DRUGS (1)
  1. CARBAMAZEPINE [Suspect]
     Indication: EPILEPSY
     Dosage: 50 MG; BID; PO
     Route: 048

REACTIONS (6)
  - APLASIA PURE RED CELL [None]
  - HAEMOLYTIC ANAEMIA ENZYME SPECIFIC [None]
  - HEPATIC ENZYME INCREASED [None]
  - MONOCYTE PERCENTAGE INCREASED [None]
  - PROTEINURIA [None]
  - WHITE BLOOD CELL COUNT DECREASED [None]
